FAERS Safety Report 5521603-7 (Version None)
Quarter: 2007Q4

REPORT INFORMATION
  Report Type: 
  Country: None (occurrence: None)
  Receive Date: 20071120
  Receipt Date: 20071113
  Transmission Date: 20080405
  Serious: Yes (Other)
  Sender: FDA-Public Use
  Company Number: US-BRISTOL-MYERS SQUIBB COMPANY-13981097

PATIENT
  Age: 70 Year
  Sex: Male

DRUGS (3)
  1. CYTOXAN [Suspect]
     Indication: MULTIPLE MYELOMA
  2. THALOMID [Suspect]
     Indication: MULTIPLE MYELOMA
     Dosage: THALOMID(50MG CAPSULES); THERAPY DATES 08-APR-2004 TO OCT-2006.
     Route: 048
     Dates: start: 20030908, end: 20040301
  3. DEXAMETHASONE [Suspect]
     Indication: MULTIPLE MYELOMA

REACTIONS (1)
  - PSORIASIS [None]
